FAERS Safety Report 6017497-6 (Version None)
Quarter: 2008Q4

REPORT INFORMATION
  Report Type: 
  Country: None (occurrence: None)
  Receive Date: 20081223
  Receipt Date: 20080409
  Transmission Date: 20090506
  Serious: Yes (Hospitalization)
  Sender: FDA-Public Use
  Company Number: US-BRISTOL-MYERS SQUIBB COMPANY-14113112

PATIENT
  Age: 47 Year
  Sex: Female

DRUGS (2)
  1. CARDIOLITE [Suspect]
     Indication: CARDIAC STRESS TEST
     Dosage: 1 DOSAGE FORM - 16.4 MCI
     Route: 042
     Dates: start: 20080312, end: 20080312
  2. CARDIOLITE [Suspect]
     Indication: CHEST PAIN
     Dosage: 1 DOSAGE FORM - 16.4 MCI
     Route: 042
     Dates: start: 20080312, end: 20080312

REACTIONS (1)
  - HYPERSENSITIVITY [None]
